FAERS Safety Report 18469006 (Version 3)
Quarter: 2021Q3

REPORT INFORMATION
  Report Type: Spontaneous
  Country: US (occurrence: US)
  Receive Date: 20201105
  Receipt Date: 20210726
  Transmission Date: 20211014
  Serious: Yes (Death, Hospitalization, Disabling, Other)
  Sender: FDA-Public Use
  Company Number: US-ASTRAZENECA-2020SF43946

PATIENT
  Age: 24658 Day
  Sex: Female
  Weight: 81.6 kg

DRUGS (37)
  1. PRILOSEC [Suspect]
     Active Substance: OMEPRAZOLE MAGNESIUM
     Indication: GASTROOESOPHAGEAL REFLUX DISEASE
     Dosage: GENERIC 20 MG?40 MG DAILY UNKNOWN
     Route: 065
     Dates: start: 2000, end: 2016
  2. PROTONIX [Suspect]
     Active Substance: PANTOPRAZOLE SODIUM
     Indication: GASTROOESOPHAGEAL REFLUX DISEASE
     Dosage: GENERIC
     Route: 065
     Dates: start: 2015
  3. VITAMIN B12 [Concomitant]
     Active Substance: CYANOCOBALAMIN
     Indication: HYPERTENSION
  4. ACIPHEX [Concomitant]
     Active Substance: RABEPRAZOLE SODIUM
  5. BUSPAR [Concomitant]
     Active Substance: BUSPIRONE HYDROCHLORIDE
  6. DECADRON [Concomitant]
     Active Substance: DEXAMETHASONE
  7. PRILOSEC [Suspect]
     Active Substance: OMEPRAZOLE MAGNESIUM
     Indication: GASTROOESOPHAGEAL REFLUX DISEASE
     Route: 048
     Dates: start: 201301, end: 201503
  8. MOVIPREP [Concomitant]
     Active Substance: ASCORBIC ACID\POLYETHYLENE GLYCOL 3350\POTASSIUM CHLORIDE\SODIUM ASCORBATE\SODIUM CHLORIDE\SODIUM SULFATE
  9. HYDROMORPHONE [Concomitant]
     Active Substance: HYDROMORPHONE
  10. METRONIDAZOLE. [Concomitant]
     Active Substance: METRONIDAZOLE
  11. PROTONIX [Suspect]
     Active Substance: PANTOPRAZOLE SODIUM
     Indication: GASTROOESOPHAGEAL REFLUX DISEASE
     Route: 065
     Dates: start: 201301, end: 201503
  12. ALEVE [Concomitant]
     Active Substance: NAPROXEN SODIUM
     Indication: PAIN
  13. AZITHROMYCIN ANHYDROUS. [Concomitant]
     Active Substance: AZITHROMYCIN ANHYDROUS
  14. PANTOPRAZOLE SODIUM. [Concomitant]
     Active Substance: PANTOPRAZOLE SODIUM
  15. SODIUM CHLORIDE. [Concomitant]
     Active Substance: SODIUM CHLORIDE
  16. PRILOSEC [Suspect]
     Active Substance: OMEPRAZOLE MAGNESIUM
     Indication: GASTROOESOPHAGEAL REFLUX DISEASE
     Route: 048
     Dates: start: 2000, end: 2016
  17. CALCIUM [Concomitant]
     Active Substance: CALCIUM
  18. CAPECITABINE. [Concomitant]
     Active Substance: CAPECITABINE
  19. ATENOLOL. [Concomitant]
     Active Substance: ATENOLOL
  20. POTASSIUM [Concomitant]
     Active Substance: POTASSIUM
  21. WARFARIN SODIUM. [Concomitant]
     Active Substance: WARFARIN SODIUM
  22. PRILOSEC [Suspect]
     Active Substance: OMEPRAZOLE MAGNESIUM
     Indication: GASTROOESOPHAGEAL REFLUX DISEASE
     Dosage: 20.0MG UNKNOWN
     Route: 048
     Dates: start: 20130111
  23. COLCRYS [Concomitant]
     Active Substance: COLCHICINE
  24. HYDROCODONE/PARACETAMOL [Concomitant]
     Active Substance: ACETAMINOPHEN\HYDROCODONE BITARTRATE
  25. BENADRYL [Concomitant]
     Active Substance: DIPHENHYDRAMINE HYDROCHLORIDE
     Indication: HYPERSENSITIVITY
     Dates: start: 2016
  26. VITAMIN D3 [Concomitant]
     Active Substance: CHOLECALCIFEROL
  27. ZANTAC [Concomitant]
     Active Substance: RANITIDINE HYDROCHLORIDE
  28. VANCOMYCIN [Concomitant]
     Active Substance: VANCOMYCIN
  29. ZINC OXIDE. [Concomitant]
     Active Substance: ZINC OXIDE
  30. IBUPROFEN. [Concomitant]
     Active Substance: IBUPROFEN
     Indication: PAIN
  31. XANAX [Concomitant]
     Active Substance: ALPRAZOLAM
  32. PRILOSEC [Suspect]
     Active Substance: OMEPRAZOLE MAGNESIUM
     Indication: GASTROOESOPHAGEAL REFLUX DISEASE
     Dosage: 20.0MG UNKNOWN
     Route: 048
     Dates: start: 20060902
  33. FUROSEMIDE. [Concomitant]
     Active Substance: FUROSEMIDE
  34. WARFARIN [Concomitant]
     Active Substance: WARFARIN
  35. MORPHINE SULPHATE [Concomitant]
     Active Substance: MORPHINE SULFATE
  36. POTASSIUM CHLORIDE. [Concomitant]
     Active Substance: POTASSIUM CHLORIDE
  37. CHERATUSSIN [Concomitant]
     Active Substance: AMMONIUM CHLORIDE\DEXTROMETHORPHAN\SODIUM CITRATE

REACTIONS (5)
  - Chronic kidney disease [Unknown]
  - Rebound acid hypersecretion [Unknown]
  - Renal failure [Unknown]
  - Metastases to bone [Unknown]
  - Adenocarcinoma gastric [Fatal]

NARRATIVE: CASE EVENT DATE: 20140130
